FAERS Safety Report 6731330-6 (Version None)
Quarter: 2010Q2

REPORT INFORMATION
  Report Type: 
  Country: None (occurrence: None)
  Receive Date: 20100517
  Receipt Date: 20100517
  Transmission Date: 20101027
  Serious: Yes (Other)
  Sender: FDA-Public Use
  Company Number: None

PATIENT
  Age: 62 Year
  Sex: Female
  Weight: 56.6996 kg

DRUGS (2)
  1. PROAIR HFA [Suspect]
     Indication: ASTHMA
     Dosage: 2 PUFFS TWICE A DAY OTHER
     Route: 050
     Dates: start: 20100209, end: 20100515
  2. PROAIR HFA [Suspect]
     Indication: INFLUENZA
     Dosage: 2 PUFFS TWICE A DAY OTHER
     Route: 050
     Dates: start: 20100209, end: 20100515

REACTIONS (9)
  - COUGH [None]
  - DYSPHONIA [None]
  - FEELING ABNORMAL [None]
  - IMPAIRED WORK ABILITY [None]
  - INSOMNIA [None]
  - OROPHARYNGEAL PAIN [None]
  - RHINORRHOEA [None]
  - TREMOR [None]
  - WHEEZING [None]
